FAERS Safety Report 11951832 (Version 1)
Quarter: 2016Q1

REPORT INFORMATION
  Report Type: Report from Study
  Country: PR (occurrence: PR)
  Receive Date: 20160125
  Receipt Date: 20160125
  Transmission Date: 20160526
  Serious: No
  Sender: FDA-Public Use
  Company Number: PR-ABBVIE-15K-131-1431884-00

PATIENT
  Age: 72 Year
  Sex: Female

DRUGS (4)
  1. DELZICOL [Concomitant]
     Active Substance: MESALAMINE
     Indication: PRODUCT USED FOR UNKNOWN INDICATION
  2. HUMIRA [Suspect]
     Active Substance: ADALIMUMAB
     Indication: COLITIS ULCERATIVE
     Route: 058
     Dates: start: 201411
  3. COZAAR [Concomitant]
     Active Substance: LOSARTAN POTASSIUM
     Indication: PRODUCT USED FOR UNKNOWN INDICATION
  4. FOLIC ACID. [Concomitant]
     Active Substance: FOLIC ACID
     Indication: PRODUCT USED FOR UNKNOWN INDICATION

REACTIONS (4)
  - Hair texture abnormal [Unknown]
  - Alopecia [Unknown]
  - Hypersensitivity [Unknown]
  - Erythema [Unknown]

NARRATIVE: CASE EVENT DATE: 201505
